FAERS Safety Report 6685845-X (Version None)
Quarter: 2010Q2

REPORT INFORMATION
  Report Type: 
  Country: None (occurrence: None)
  Receive Date: 20100415
  Receipt Date: 20100415
  Transmission Date: 20101027
  Serious: Yes (Hospitalization)
  Sender: FDA-Public Use
  Company Number: None

PATIENT
  Sex: Female
  Weight: 61 kg

DRUGS (1)
  1. CYTARABINE [Suspect]
     Dosage: 2306 MG
     Dates: end: 20090801

REACTIONS (2)
  - ABDOMINAL PAIN [None]
  - BODY TEMPERATURE INCREASED [None]
